FAERS Safety Report 8983906 (Version 1)
Quarter: 2012Q4

REPORT INFORMATION
  Report Type: Spontaneous
  Country: US (occurrence: None)
  Receive Date: 20121218
  Receipt Date: 20121218
  Transmission Date: 20130627
  Serious: Yes (Hospitalization)
  Sender: FDA-Public Use
  Company Number: None

PATIENT
  Age: 46 Year
  Sex: Male
  Weight: 70.9 kg

DRUGS (2)
  1. TRAMADOL [Suspect]
     Indication: PAIN
     Dosage: 50mg q 4 hours-prn po
     Route: 048
  2. BUPROPRION XL [Suspect]
     Dosage: 300mg xl daily po
     Route: 048

REACTIONS (5)
  - Convulsion [None]
  - Tongue injury [None]
  - Laceration [None]
  - Coagulopathy [None]
  - Tongue haemorrhage [None]
